FAERS Safety Report 16567542 (Version 1)
Quarter: 2019Q3

REPORT INFORMATION
  Report Type: Spontaneous
  Country: US (occurrence: US)
  Receive Date: 20190712
  Receipt Date: 20190712
  Transmission Date: 20191004
  Serious: No
  Sender: FDA-Public Use
  Company Number: US-ALEXION PHARMACEUTICALS INC.-A201910439

PATIENT

DRUGS (1)
  1. SOLIRIS [Suspect]
     Active Substance: ECULIZUMAB
     Indication: PRODUCT USED FOR UNKNOWN INDICATION
     Dosage: UNK
     Route: 065

REACTIONS (10)
  - Blood lactate dehydrogenase increased [Unknown]
  - Blood chloride increased [Unknown]
  - Aspartate aminotransferase increased [Unknown]
  - Bilirubin conjugated increased [Unknown]
  - Carbon dioxide decreased [Unknown]
  - Blood bilirubin increased [Unknown]
  - Blood albumin decreased [Unknown]
  - Blood glucose increased [Unknown]
  - Blood bilirubin unconjugated increased [Unknown]
  - Lipase abnormal [Unknown]

NARRATIVE: CASE EVENT DATE: 20190630
